FAERS Safety Report 12520776 (Version 1)
Quarter: 2016Q2

REPORT INFORMATION
  Report Type: Spontaneous
  Country: None (occurrence: None)
  Receive Date: 20160630
  Receipt Date: 20160630
  Transmission Date: 20160815
  Serious: No
  Sender: FDA-Public Use
  Company Number: None

PATIENT
  Sex: Female

DRUGS (1)
  1. OXICONAZOLE NITRATE. [Suspect]
     Active Substance: OXICONAZOLE NITRATE

REACTIONS (3)
  - Product substitution issue [None]
  - Hypersensitivity [None]
  - Rash [None]
